FAERS Safety Report 10501735 (Version 1)
Quarter: 2014Q4

REPORT INFORMATION
  Report Type: Spontaneous
  Country: US (occurrence: None)
  Receive Date: 20141006
  Receipt Date: 20141006
  Transmission Date: 20150528
  Serious: Yes (Life-Threatening, Disabling, Other)
  Sender: FDA-Public Use
  Company Number: None

PATIENT
  Age: 69 Year
  Sex: Female
  Weight: 74.84 kg

DRUGS (1)
  1. GASTROGRAFIN [Suspect]
     Active Substance: DIATRIZOATE MEGLUMINE\DIATRIZOATE SODIUM
     Indication: HERNIA REPAIR
     Dates: start: 20140917, end: 20140917

REACTIONS (8)
  - Diarrhoea [None]
  - Oral mucosal exfoliation [None]
  - Contraindication to medical treatment [None]
  - Decreased appetite [None]
  - Asthenia [None]
  - Feeling abnormal [None]
  - Tongue exfoliation [None]
  - Contrast media reaction [None]

NARRATIVE: CASE EVENT DATE: 20140926
